FAERS Safety Report 15200351 (Version 1)
Quarter: 2018Q3

REPORT INFORMATION
  Report Type: Report from Study
  Country: None (occurrence: NL)
  Receive Date: 20180726
  Receipt Date: 20180726
  Transmission Date: 20181010
  Serious: Yes (Other)
  Sender: FDA-Public Use
  Company Number: NL-ABBVIE-18S-114-2427451-00

PATIENT
  Sex: Female

DRUGS (1)
  1. DUODOPA [Suspect]
     Active Substance: CARBIDOPA\LEVODOPA
     Indication: PARKINSON^S DISEASE
     Dosage: MORNING DOSE:  10.8??CONTINUOUS DOSE:1.9?   ?EXTRA DOSE:2
     Route: 050
     Dates: start: 20140416

REACTIONS (2)
  - Cataract [Recovered/Resolved]
  - Visual impairment [Not Recovered/Not Resolved]
